FAERS Safety Report 9452606 (Version 1)
Quarter: 2013Q3

REPORT INFORMATION
  Report Type: Spontaneous
  Country: US (occurrence: US)
  Receive Date: 20130812
  Receipt Date: 20130812
  Transmission Date: 20140515
  Serious: No
  Sender: FDA-Public Use
  Company Number: US-PFIZER INC-2013230137

PATIENT
  Sex: Female

DRUGS (5)
  1. CYTOMEL [Suspect]
     Indication: THYROID DISORDER
     Dosage: UNK
  2. LEVOTHYROXINE SODIUM [Suspect]
     Indication: THYROID DISORDER
     Dosage: UNK
  3. SYNTHROID [Suspect]
     Indication: THYROID DISORDER
     Dosage: UNK
  4. UNITHROID [Suspect]
     Indication: THYROID DISORDER
     Dosage: UNK
  5. LEVOTHROID [Suspect]
     Indication: THYROID DISORDER
     Dosage: UNK

REACTIONS (3)
  - Hypersensitivity [Unknown]
  - Drug intolerance [Unknown]
  - Throat irritation [Unknown]
